FAERS Safety Report 7485022-9 (Version None)
Quarter: 2011Q2

REPORT INFORMATION
  Report Type: 
  Country: None (occurrence: None)
  Receive Date: 20110517
  Receipt Date: 20101014
  Transmission Date: 20111010
  Serious: No
  Sender: FDA-Public Use
  Company Number: US-BAYER-201022553BCC

PATIENT
  Age: 74 Year
  Sex: Female
  Weight: 54.545 kg

DRUGS (5)
  1. TEGRETOL [Concomitant]
  2. NAPROXEN (ALEVE) [Suspect]
     Indication: ARTHRITIS
     Dosage: 220 MG, ONCE
     Route: 048
     Dates: start: 20101013
  3. MOBIC [Concomitant]
     Dosage: UNK
     Dates: end: 20101012
  4. CALCIUM CARBONATE W/VITAMIN D NOS [Concomitant]
  5. TYLENOL (CAPLET) [Concomitant]

REACTIONS (4)
  - NERVOUSNESS [None]
  - INSOMNIA [None]
  - FEELING ABNORMAL [None]
  - PRURITUS [None]
